FAERS Safety Report 4440812-1 (Version None)
Quarter: 2004Q3

REPORT INFORMATION
  Report Type: 
  Country: None (occurrence: None)
  Receive Date: 20040903
  Receipt Date: 20040625
  Transmission Date: 20050211
  Serious: Yes (Life-Threatening, Hospitalization)
  Sender: FDA-Public Use
  Company Number: US-GLAXOSMITHKLINE-A0516210A

PATIENT
  Age: 75 Year
  Sex: Male
  Weight: 77.3 kg

DRUGS (6)
  1. LAMICTAL [Suspect]
     Route: 048
     Dates: start: 20040101, end: 20040501
  2. COUMADIN [Suspect]
     Indication: AORTIC VALVE DISEASE
     Route: 048
  3. VERAPAMIL [Concomitant]
  4. SIMVASTATIN [Concomitant]
  5. ASPIRIN [Concomitant]
  6. DILANTIN [Concomitant]

REACTIONS (7)
  - CEREBROVASCULAR ACCIDENT [None]
  - DRUG INTERACTION [None]
  - DRUG LEVEL FLUCTUATING [None]
  - INTERNATIONAL NORMALISED RATIO ABNORMAL [None]
  - NERVOUS SYSTEM DISORDER [None]
  - SYNCOPE [None]
  - TRANSIENT ISCHAEMIC ATTACK [None]
